FAERS Safety Report 7803910-8 (Version None)
Quarter: 2011Q4

REPORT INFORMATION
  Report Type: 
  Country: None (occurrence: None)
  Receive Date: 20111010
  Receipt Date: 20110928
  Transmission Date: 20120403
  Serious: Yes (Death)
  Sender: FDA-Public Use
  Company Number: JP-JNJFOC-20110305652

PATIENT
  Sex: Male
  Weight: 45 kg

DRUGS (18)
  1. METHOTREXATE [Concomitant]
     Indication: ERYTHRODERMIC PSORIASIS
     Route: 048
     Dates: start: 20100105, end: 20100904
  2. PYDOXAL [Concomitant]
     Route: 048
     Dates: start: 20100304
  3. ALLEGRA [Concomitant]
     Route: 048
  4. REMICADE [Suspect]
     Route: 042
     Dates: start: 20101229
  5. ISONIAZID [Concomitant]
     Route: 048
     Dates: start: 20100304
  6. NORVASC [Concomitant]
     Route: 048
  7. RABEPRAZOLE SODIUM [Concomitant]
     Route: 048
  8. REMICADE [Suspect]
     Indication: ERYTHRODERMIC PSORIASIS
     Route: 042
  9. LIPITOR [Concomitant]
     Route: 048
  10. OLOPATADINE HCL [Concomitant]
     Route: 048
  11. REMICADE [Suspect]
     Route: 042
     Dates: start: 20101019
  12. REMICADE [Suspect]
     Route: 042
     Dates: start: 20100824
  13. REMICADE [Suspect]
     Route: 042
  14. REMICADE [Suspect]
     Route: 042
  15. ZOLPIDEM [Concomitant]
     Route: 048
  16. LENDORMIN [Concomitant]
     Route: 048
  17. REMICADE [Suspect]
     Route: 042
     Dates: start: 20100325
  18. SULFAMETHOXAZOLE [Concomitant]
     Route: 048
     Dates: start: 20100130

REACTIONS (7)
  - PNEUMOTHORAX [None]
  - RESPIRATORY DISORDER [None]
  - CHOLECYSTITIS ACUTE [None]
  - DISSEMINATED INTRAVASCULAR COAGULATION [None]
  - SHOCK [None]
  - INFLUENZA [None]
  - SEPSIS [None]
